FAERS Safety Report 9722396 (Version 3)
Quarter: 2014Q1

REPORT INFORMATION
  Report Type: Spontaneous
  Country: AU (occurrence: AU)
  Receive Date: 20131202
  Receipt Date: 20140211
  Transmission Date: 20141002
  Serious: Yes (Death, Hospitalization, Disabling, Congenital Anomaly, Other)
  Sender: FDA-Public Use
  Company Number: AU-CELGENEUS-008-POMAL-13114865

PATIENT
  Age: 57 Year
  Sex: Female

DRUGS (12)
  1. POMALYST [Suspect]
     Indication: PLASMA CELL LEUKAEMIA
     Route: 048
     Dates: start: 2012, end: 2012
  2. POMALYST [Suspect]
     Dosage: 4 MILLIGRAM
     Route: 048
     Dates: start: 20130118, end: 2013
  3. DEXAMETHASONE [Suspect]
     Indication: PLASMA CELL LEUKAEMIA
     Route: 065
  4. CYCLOPHOSPHAMIDE [Concomitant]
     Indication: PLASMA CELL LEUKAEMIA
     Route: 065
  5. PLATELETS [Concomitant]
     Indication: PLASMA CELL LEUKAEMIA
     Route: 041
  6. CISPLATIN [Concomitant]
     Indication: PLASMA CELL LEUKAEMIA
     Route: 065
  7. DOXORUBICIN [Concomitant]
     Indication: PLASMA CELL LEUKAEMIA
     Route: 065
  8. ETOPOSIDE [Concomitant]
     Indication: PLASMA CELL LEUKAEMIA
     Route: 065
  9. FENTANYL [Concomitant]
     Indication: ANALGESIC THERAPY
     Route: 065
  10. VALACICLOVIR [Concomitant]
     Indication: PROPHYLAXIS
     Route: 065
  11. TEMAZEPAM [Concomitant]
     Indication: SLEEP DISORDER
     Route: 065
  12. DOCUSATE SODIUM\SENNOSIDES [Concomitant]
     Indication: CONSTIPATION
     Route: 065

REACTIONS (3)
  - Mania [Recovered/Resolved with Sequelae]
  - Plasma cell leukaemia [Fatal]
  - Liver function test abnormal [Not Recovered/Not Resolved]
